FAERS Safety Report 6333139 (Version 2)
Quarter: 2020Q3

REPORT INFORMATION
  Report Type: Report from Study
  Country: DE (occurrence: DE)
  Receive Date: 20070614
  Receipt Date: 20070702
  Transmission Date: 20201104
  Serious: Yes (Hospitalization)
  Sender: FDA-Public Use
  Company Number: DE-ROCHE-500721

PATIENT
  Age: 67 Year
  Sex: Female

DRUGS (3)
  1. PHENPROCOUMON [Suspect]
     Active Substance: PHENPROCOUMON
     Indication: MITRAL VALVE REPLACEMENT
     Route: 065
  2. CAPECITABINE. [Suspect]
     Active Substance: CAPECITABINE
     Indication: BREAST CANCER
     Dosage: AS PER PROTOCOL: DIVIDED TO TWO DAILY DOSES ON DAYS 1?14 Q DAY 22
     Route: 048
     Dates: start: 20070327
  3. IBANDRONIC ACID. [Suspect]
     Active Substance: IBANDRONIC ACID
     Indication: BREAST CANCER
     Route: 042
     Dates: start: 20070326

REACTIONS (1)
  - Intra-abdominal haematoma [Recovered/Resolved]

NARRATIVE: CASE EVENT DATE: 20070531
